FAERS Safety Report 9177803 (Version 1)
Quarter: 2013Q1

REPORT INFORMATION
  Report Type: Spontaneous
  Country: US (occurrence: US)
  Receive Date: 20130321
  Receipt Date: 20130321
  Transmission Date: 20140127
  Serious: Yes (Hospitalization, Disabling, Other)
  Sender: FDA-Public Use
  Company Number: US-PFIZER INC-HQWYE592117NOV05

PATIENT
  Age: 56 Year
  Sex: Female
  Weight: 95.3 kg

DRUGS (15)
  1. TYGACIL [Suspect]
     Indication: OSTEOMYELITIS
     Dosage: 100 MG LOAD, THEN 50 MG EVERY 12 HOURS
     Route: 042
     Dates: start: 20051107, end: 20051114
  2. AMITRIPTYLINE [Concomitant]
     Dosage: UNK
     Route: 048
     Dates: start: 2000
  3. ROCEPHIN [Concomitant]
     Dosage: UNK
     Route: 042
     Dates: start: 20051006
  4. HEPARIN [Concomitant]
     Dosage: UNK
     Route: 042
     Dates: start: 20051006
  5. MICARDIS HCT [Concomitant]
     Dosage: UNK
     Route: 048
     Dates: start: 2005
  6. SYNTHROID [Concomitant]
     Route: 048
  7. OXYCODONE [Concomitant]
     Dosage: UNK
     Route: 048
     Dates: start: 200509
  8. PAROXETINE [Concomitant]
     Dosage: UNK
     Route: 048
     Dates: start: 2000
  9. PREDNISONE [Concomitant]
     Dosage: UNK
     Route: 048
     Dates: start: 1989
  10. SODIUM CHLORIDE BACTERIOSTATIC [Concomitant]
     Dosage: UNK
     Route: 042
     Dates: start: 20051006
  11. VANCOMYCIN [Concomitant]
     Dosage: UNK
     Route: 042
     Dates: start: 20051006
  12. SODIUM CHLORIDE [Concomitant]
  13. LEVOTHYROXINE [Concomitant]
  14. HYDROCHLOROTHIAZIDE [Concomitant]
  15. CEFTRIAXONE [Concomitant]

REACTIONS (3)
  - Pancreatitis [Recovered/Resolved with Sequelae]
  - Diabetes mellitus [Not Recovered/Not Resolved]
  - Embolism [Unknown]
